FAERS Safety Report 14417457 (Version 1)
Quarter: 2018Q1

REPORT INFORMATION
  Report Type: Spontaneous
  Country: SE (occurrence: SE)
  Receive Date: 20180122
  Receipt Date: 20180122
  Transmission Date: 20180509
  Serious: Yes (Hospitalization)
  Sender: FDA-Public Use
  Company Number: SE-JNJFOC-20180114287

PATIENT
  Age: 24 Year
  Sex: Female

DRUGS (2)
  1. IPREN [Suspect]
     Active Substance: IBUPROFEN
     Indication: PRODUCT USED FOR UNKNOWN INDICATION
     Route: 065
  2. IPREN [Suspect]
     Active Substance: IBUPROFEN
     Route: 065

REACTIONS (3)
  - Intentional self-injury [Unknown]
  - Abdominal pain upper [Unknown]
  - Toxicity to various agents [Unknown]
